FAERS Safety Report 5669571-1 (Version None)
Quarter: 2008Q1

REPORT INFORMATION
  Report Type: 
  Country: None (occurrence: None)
  Receive Date: 20080312
  Receipt Date: 20080312
  Transmission Date: 20080703
  Serious: No
  Sender: FDA-Public Use
  Company Number: None

PATIENT
  Sex: Female
  Weight: 11.2 kg

DRUGS (1)
  1. VANCOMYCIN [Suspect]
     Indication: OSTEOMYELITIS
     Dosage: 180MG Q 8 HOURS IV
     Route: 042
     Dates: start: 20080109, end: 20080124

REACTIONS (2)
  - RASH ERYTHEMATOUS [None]
  - URTICARIA [None]
